FAERS Safety Report 22611096 (Version 1)
Quarter: 2023Q2

REPORT INFORMATION
  Report Type: Spontaneous
  Country: US (occurrence: None)
  Receive Date: 20230615
  Receipt Date: 20230615
  Transmission Date: 20230722
  Serious: No
  Sender: FDA-Public Use
  Company Number: None

PATIENT
  Sex: Male

DRUGS (13)
  1. LENALIDOMIDE [Suspect]
     Active Substance: LENALIDOMIDE
     Indication: Plasma cell myeloma
     Dosage: FREQUENCY : DAILY;?OTHER ROUTE : PO  1-21/28D CYCLE;?
     Route: 050
  2. FINASTERIDE [Concomitant]
     Active Substance: FINASTERIDE
  3. GABAPENTIN [Concomitant]
  4. FERROUSUL [Concomitant]
  5. HYDROCHLOROTHIAZIDE\LOSARTAN POTASSIUM [Concomitant]
     Active Substance: HYDROCHLOROTHIAZIDE\LOSARTAN POTASSIUM
  6. AMLODIPINE [Concomitant]
  7. ESCITALOPRAM [Concomitant]
     Active Substance: ESCITALOPRAM OXALATE
  8. PRESERVISION [Concomitant]
  9. VITAMINS [Concomitant]
     Active Substance: VITAMINS
  10. SM CALCIUM VITAMIN [Concomitant]
  11. VITAMIN B [Concomitant]
  12. ACYCLOVIR [Concomitant]
     Active Substance: ACYCLOVIR
  13. DEXAMETHASONE [Concomitant]
     Active Substance: DEXAMETHASONE

REACTIONS (1)
  - Influenza [None]
